FAERS Safety Report 20598683 (Version 2)
Quarter: 2024Q4

REPORT INFORMATION
  Report Type: Report from Study
  Country: DE (occurrence: DE)
  Receive Date: 20220315
  Receipt Date: 20241028
  Transmission Date: 20250115
  Serious: Yes (Other)
  Sender: MYLAN
  Company Number: DE-002147023-NVSC2020DE230501

PATIENT
  Age: 66 Year
  Sex: Female

DRUGS (3)
  1. METHOTREXATE [Suspect]
     Active Substance: METHOTREXATE
     Indication: Product used for unknown indication
     Dosage: UNK
     Route: 065
  2. ERELZI [Suspect]
     Active Substance: ETANERCEPT-SZZS
     Indication: Product used for unknown indication
     Dosage: UNK
     Route: 065
  3. ENBREL [Suspect]
     Active Substance: ETANERCEPT
     Indication: Product used for unknown indication
     Dosage: UNK
     Route: 065

REACTIONS (8)
  - Diverticulitis [Recovered/Resolved]
  - Anal abscess [Not Recovered/Not Resolved]
  - Lumbar spinal stenosis [Recovered/Resolved]
  - Spinal stenosis [Not Recovered/Not Resolved]
  - Cervicobrachial syndrome [Unknown]
  - Facet joint syndrome [Unknown]
  - Bronchitis [Not Recovered/Not Resolved]
  - Oral herpes [Not Recovered/Not Resolved]

NARRATIVE: CASE EVENT DATE: 20191119
